FAERS Safety Report 17172599 (Version 1)
Quarter: 2019Q4

REPORT INFORMATION
  Report Type: Spontaneous
  Country: IT (occurrence: IT)
  Receive Date: 20191218
  Receipt Date: 20191218
  Transmission Date: 20200122
  Serious: Yes (Other)
  Sender: FDA-Public Use
  Company Number: IT-MYLANLABS-2019M1124032

PATIENT
  Age: 17 Year
  Sex: Female

DRUGS (11)
  1. BACLOFEN. [Suspect]
     Active Substance: BACLOFEN
     Indication: ANALGESIC THERAPY
     Dosage: UNK
  2. KETAMINE [Interacting]
     Active Substance: KETAMINE
     Indication: ANALGESIC THERAPY
     Dosage: UNK
     Route: 041
  3. SUFENTANIL [Interacting]
     Active Substance: SUFENTANIL
     Indication: ANALGESIC THERAPY
     Dosage: UNK
  4. MORPHINE [Interacting]
     Active Substance: MORPHINE
     Indication: PROCEDURAL PAIN
     Dosage: UNK
     Route: 065
  5. BACLOFEN. [Interacting]
     Active Substance: BACLOFEN
     Indication: SCOLIOSIS
     Dosage: UNK
     Route: 037
  6. SUFENTANIL [Interacting]
     Active Substance: SUFENTANIL
     Indication: PROCEDURAL PAIN
     Dosage: UNK
     Route: 041
  7. MORPHINE [Interacting]
     Active Substance: MORPHINE
     Indication: ANALGESIC THERAPY
     Dosage: UNK
  8. MORPHINE [Interacting]
     Active Substance: MORPHINE
     Dosage: UNK
  9. KETAMINE [Interacting]
     Active Substance: KETAMINE
     Indication: PROCEDURAL PAIN
     Dosage: UNK
     Route: 065
  10. SUFENTANIL [Interacting]
     Active Substance: SUFENTANIL
     Dosage: UNK
  11. BACLOFEN. [Interacting]
     Active Substance: BACLOFEN
     Dosage: UNK

REACTIONS (4)
  - Drug interaction [Unknown]
  - Product use in unapproved indication [Unknown]
  - Sedation [Unknown]
  - Respiratory depression [Unknown]
